FAERS Safety Report 7625156-9 (Version None)
Quarter: 2011Q3

REPORT INFORMATION
  Report Type: 
  Country: None (occurrence: None)
  Receive Date: 20110713
  Receipt Date: 20110629
  Transmission Date: 20111222
  Serious: Yes (Life-Threatening, Hospitalization, Disabling, Other)
  Sender: FDA-Public Use
  Company Number: 1000021094

PATIENT
  Age: 36 Year
  Sex: Female

DRUGS (3)
  1. ESCITALOPRAM [Suspect]
     Dosage: 1 DOSAGE FORM (1 DOSAGE FORMS, 1 IN D)
     Dates: start: 20080801, end: 20090305
  2. CAPOZIDE 25/15 [Suspect]
     Dosage: 1 DOSAGE FORM (1 DOSAGE FORMS, 1 IN 1 D), ORAL
     Route: 048
     Dates: start: 20090203, end: 20090219
  3. LIPOTOX (LIPOTOX) [Suspect]
     Dates: start: 20090120, end: 20090125

REACTIONS (2)
  - TOXICITY TO VARIOUS AGENTS [None]
  - HEPATITIS ACUTE [None]
